FAERS Safety Report 5821014-0 (Version None)
Quarter: 2008Q3

REPORT INFORMATION
  Report Type: 
  Country: None (occurrence: None)
  Receive Date: 20080724
  Receipt Date: 20080717
  Transmission Date: 20090109
  Serious: Yes (Hospitalization, Other)
  Sender: FDA-Public Use
  Company Number: AU-NOVOPROD-275583

PATIENT
  Age: 1 Year
  Sex: Female
  Weight: 12.3 kg

DRUGS (7)
  1. NORDITROPIN [Suspect]
     Indication: HYPOPITUITARISM FOETAL
     Dosage: .12 MG, UNK
     Route: 058
     Dates: start: 20070504
  2. HYDROCORTISONE [Concomitant]
     Indication: HYPOPITUITARISM
     Dosage: 2 MG, QD
     Route: 048
     Dates: start: 20070501
  3. LEVOTHYROXINE SODIUM [Concomitant]
     Indication: HYPOPITUITARISM
     Dosage: 50 UG, QD
     Route: 048
     Dates: start: 20070503
  4. HYDROCHLOROTHIAZIDE [Concomitant]
     Indication: DIABETES INSIPIDUS
     Dosage: 15 MG, QD
     Route: 048
     Dates: start: 20070530, end: 20080429
  5. DDAVP [Concomitant]
     Indication: DIABETES INSIPIDUS
     Dosage: 200 MG, QD
     Route: 048
     Dates: start: 20080430
  6. PHENOBARBITONE                     /00023201/ [Concomitant]
     Indication: EPILEPSY
     Dosage: 30 MG, QD
     Route: 048
     Dates: start: 20080430
  7. OMEPRAZOLE [Concomitant]
     Indication: VOMITING
     Dosage: 20 MG, QD
     Route: 048
     Dates: start: 20080515, end: 20080530

REACTIONS (5)
  - CONGENITAL CHOROID PLEXUS CYST [None]
  - CONVULSION [None]
  - DEPRESSED LEVEL OF CONSCIOUSNESS [None]
  - EPILEPSY [None]
  - UPPER RESPIRATORY TRACT INFECTION [None]
